FAERS Safety Report 6578882-7 (Version None)
Quarter: 2010Q1

REPORT INFORMATION
  Report Type: 
  Country: None (occurrence: None)
  Receive Date: 20100212
  Receipt Date: 20100204
  Transmission Date: 20100710
  Serious: Yes (Hospitalization)
  Sender: FDA-Public Use
  Company Number: CA-BIOGENIDEC-2010BI001967

PATIENT
  Age: 59 Year
  Sex: Male

DRUGS (5)
  1. TYSABRI [Suspect]
     Indication: MULTIPLE SCLEROSIS
     Route: 042
     Dates: start: 20080730
  2. LYRICA [Concomitant]
  3. AMITRIPTYLINE HCL [Concomitant]
  4. HYDROMORPHONE HYDROCHLORIDE [Concomitant]
  5. METFORMIN HCL [Concomitant]

REACTIONS (2)
  - COUGH [None]
  - GASTROENTERITIS [None]
